FAERS Safety Report 9461263 (Version 3)
Quarter: 2013Q3

REPORT INFORMATION
  Report Type: Spontaneous
  Country: US (occurrence: US)
  Receive Date: 20130816
  Receipt Date: 20130911
  Transmission Date: 20140515
  Serious: No
  Sender: FDA-Public Use
  Company Number: US-PFIZER INC-2013234014

PATIENT
  Sex: 0

DRUGS (1)
  1. TOVIAZ [Suspect]
     Dosage: 4 MG, 1X/DAY

REACTIONS (1)
  - Dysuria [Unknown]
